FAERS Safety Report 9581567 (Version 2)
Quarter: 2013Q4

REPORT INFORMATION
  Report Type: Spontaneous
  Country: US (occurrence: US)
  Receive Date: 20131002
  Receipt Date: 20131002
  Transmission Date: 20140711
  Serious: No
  Sender: FDA-Public Use
  Company Number: US-PURDUE-USA-2012-0081494

PATIENT
  Sex: Male

DRUGS (1)
  1. BUTRANS [Suspect]
     Indication: PRODUCT USED FOR UNKNOWN INDICATION
     Dosage: 20 MCG, Q1H
     Route: 062

REACTIONS (5)
  - Application site scab [Not Recovered/Not Resolved]
  - Application site burn [Not Recovered/Not Resolved]
  - Application site irritation [Unknown]
  - Application site urticaria [Unknown]
  - Application site pain [Unknown]
